FAERS Safety Report 8806031 (Version 1)
Quarter: 2012Q4

REPORT INFORMATION
  Report Type: Spontaneous
  Country: US (occurrence: None)
  Receive Date: 20120919
  Receipt Date: 20120919
  Transmission Date: 20130627
  Serious: Yes (Other)
  Sender: FDA-Public Use
  Company Number: None

PATIENT
  Age: 38 Year
  Sex: Female

DRUGS (2)
  1. LETAIRIS [Suspect]
     Dosage: 10MG QD PO
     Route: 048
     Dates: start: 20111130
  2. LETAIRIS [Suspect]
     Dates: start: 20120918

REACTIONS (3)
  - Tremor [None]
  - Neck pain [None]
  - Headache [None]
